FAERS Safety Report 8843396 (Version 2)
Quarter: 2012Q4

REPORT INFORMATION
  Report Type: 
  Country: US (occurrence: US)
  Receive Date: 20121016
  Receipt Date: 20121017
  Transmission Date: 20130627
  Serious: Yes (Death)
  Sender: FDA-Public Use
  Company Number: US-ROCHE-1132039

PATIENT
  Age: 68 Year
  Sex: Male

DRUGS (1)
  1. XELODA [Suspect]
     Indication: RENAL CANCER
     Route: 048
     Dates: end: 20100831

REACTIONS (1)
  - Disease progression [Fatal]
